FAERS Safety Report 17190119 (Version 2)
Quarter: 2020Q1

REPORT INFORMATION
  Report Type: Spontaneous
  Country: GB (occurrence: GB)
  Receive Date: 20191223
  Receipt Date: 20200225
  Transmission Date: 20200409
  Serious: Yes (Hospitalization)
  Sender: FDA-Public Use
  Company Number: GB-TEVA-2019-GB-1155432

PATIENT
  Age: 78 Year
  Sex: Male
  Weight: 87 kg

DRUGS (14)
  1. ALLOPURINOL. [Concomitant]
     Active Substance: ALLOPURINOL
  2. WARFARIN [Concomitant]
     Active Substance: WARFARIN
  3. ENTRESTO [Concomitant]
     Active Substance: SACUBITRIL\VALSARTAN
     Dosage: 97/103MG BD
  4. BUMETANIDE. [Concomitant]
     Active Substance: BUMETANIDE
     Dosage: 2MG MANE, 1MG LUNCHTIME
  5. FENOFIBRATE. [Concomitant]
     Active Substance: FENOFIBRATE
  6. CARBOCISTEINE [Concomitant]
     Active Substance: CARBOCYSTEINE
  7. HUMULIN L [Concomitant]
     Active Substance: INSULIN HUMAN
  8. CARVEDILOL. [Concomitant]
     Active Substance: CARVEDILOL
  9. ESOMEPRAZOLE. [Concomitant]
     Active Substance: ESOMEPRAZOLE MAGNESIUM
  10. EZETIMIBE. [Concomitant]
     Active Substance: EZETIMIBE
  11. AMIODARONE [Suspect]
     Active Substance: AMIODARONE
     Indication: ATRIAL FIBRILLATION
     Dosage: 200 MG PER DAY
     Route: 048
     Dates: start: 20190412, end: 20190717
  12. CLOPIDOGREL [Concomitant]
     Active Substance: CLOPIDOGREL BISULFATE
  13. TEMAZEPAM. [Concomitant]
     Active Substance: TEMAZEPAM
     Dosage: TONIGHT
  14. EPLERENONE. [Concomitant]
     Active Substance: EPLERENONE
     Dosage: LUNCHTIME

REACTIONS (7)
  - Orthopnoea [Recovered/Resolved]
  - Dyspnoea [Recovered/Resolved]
  - Dyspnoea paroxysmal nocturnal [Recovered/Resolved]
  - Pulmonary mass [Recovered/Resolved]
  - Pneumonitis [Recovered/Resolved]
  - Interstitial lung disease [Recovered/Resolved]
  - Pulmonary toxicity [Recovered/Resolved]
